FAERS Safety Report 5189990-X (Version None)
Quarter: 2006Q4

REPORT INFORMATION
  Report Type: 
  Country: None (occurrence: None)
  Receive Date: 20061215
  Receipt Date: 20061204
  Transmission Date: 20070319
  Serious: Yes (Other)
  Sender: FDA-Public Use
  Company Number: 2006148448

PATIENT
  Age: 79 Year
  Sex: Female

DRUGS (6)
  1. ZARONTIN [Suspect]
     Indication: EPILEPSY
     Dosage: 250 MG (250 MG, 1 IN 1 D)
     Dates: start: 20050101
  2. ZARONDAN (ETHOSUXIMIDE) [Concomitant]
  3. COAPROVEL (HYDROCHLOROTHIAZIDE, IRBESARTAN) [Concomitant]
  4. METOPROLOL SUCCINATE [Concomitant]
  5. SIMVASTATIN [Concomitant]
  6. GLUCOPHAGE [Concomitant]

REACTIONS (2)
  - DISEASE RECURRENCE [None]
  - GRAND MAL CONVULSION [None]
